FAERS Safety Report 25791036 (Version 1)
Quarter: 2025Q3

REPORT INFORMATION
  Report Type: Other
  Country: US (occurrence: US)
  Receive Date: 20250911
  Receipt Date: 20250911
  Transmission Date: 20251021
  Serious: Yes (Hospitalization, Other)
  Sender: APPCO PHARMA LLC
  Company Number: US-Appco Pharma LLC-2184284

PATIENT
  Age: 59 Year
  Sex: Female

DRUGS (5)
  1. SERTRALINE [Suspect]
     Active Substance: SERTRALINE HYDROCHLORIDE
     Indication: Anxiety
  2. QUETIAPINE [Suspect]
     Active Substance: QUETIAPINE
  3. DEFERIPRONE [Concomitant]
     Active Substance: DEFERIPRONE
  4. MIRTAZAPINE [Suspect]
     Active Substance: MIRTAZAPINE
  5. VALPROIC ACID [Concomitant]
     Active Substance: VALPROIC ACID

REACTIONS (1)
  - Neuroleptic malignant syndrome [Recovered/Resolved]
